FAERS Safety Report 6994670-1 (Version None)
Quarter: 2010Q3

REPORT INFORMATION
  Report Type: 
  Country: None (occurrence: None)
  Receive Date: 20100915
  Receipt Date: 20100831
  Transmission Date: 20110219
  Serious: Yes (Other)
  Sender: FDA-Public Use
  Company Number: 010949

PATIENT
  Age: 81 Year
  Sex: Male

DRUGS (2)
  1. PLETAL [Suspect]
     Dosage: ORAL
  2. DONEPEZIL HYDROCHLORIDE [Concomitant]

REACTIONS (1)
  - CARDIAC FAILURE [None]
